FAERS Safety Report 8678344 (Version 3)
Quarter: 2013Q4

REPORT INFORMATION
  Report Type: Spontaneous
  Country: DK (occurrence: DK)
  Receive Date: 20120723
  Receipt Date: 20131108
  Transmission Date: 20140711
  Serious: Yes (Disabling, Congenital Anomaly, Other)
  Sender: FDA-Public Use
  Company Number: DK-009507513-2011SP060150

PATIENT
  Age: 1 Day
  Sex: Male

DRUGS (2)
  1. TRILAFON [Suspect]
     Indication: PSYCHOTIC DISORDER
     Dosage: UNK UNK, UNKNOWN
     Route: 064
  2. FONTEX [Suspect]
     Dosage: UNK UNK, UNKNOWN
     Route: 064

REACTIONS (9)
  - Mild mental retardation [Not Recovered/Not Resolved]
  - Asphyxia [Not Recovered/Not Resolved]
  - Speech disorder developmental [Not Recovered/Not Resolved]
  - Asocial behaviour [Not Recovered/Not Resolved]
  - Cognitive disorder [Not Recovered/Not Resolved]
  - Hypokinesia [Not Recovered/Not Resolved]
  - Fine motor delay [Not Recovered/Not Resolved]
  - Dysphagia [Unknown]
  - Foetal exposure during pregnancy [Recovered/Resolved]
